FAERS Safety Report 6375985-7 (Version None)
Quarter: 2009Q3

REPORT INFORMATION
  Report Type: 
  Country: None (occurrence: None)
  Receive Date: 20090921
  Receipt Date: 20090910
  Transmission Date: 20100115
  Serious: Yes (Hospitalization)
  Sender: FDA-Public Use
  Company Number: SPV1-2009-01763

PATIENT
  Age: 81 Year
  Sex: Male

DRUGS (11)
  1. FOSRENOL [Suspect]
     Indication: HYPERPHOSPHATAEMIA
     Dosage: ORAL
     Route: 048
     Dates: start: 20090318, end: 20090808
  2. NORVASC [Concomitant]
  3. ASPIRIN [Concomitant]
  4. PLAVIX [Concomitant]
  5. ENALAPRIL MALEATE [Concomitant]
  6. LANSOPRAZOLE [Concomitant]
  7. SIGMART (NICORANDIL) [Concomitant]
  8. CALTAN (CALCIUM CARBONATE) [Concomitant]
  9. PROMAC (NITROFURANTOIN) [Concomitant]
  10. LAXOBERON (SODIUM PICOSULFATE) [Concomitant]
  11. RIVOTRIL (CLONAZEPAM) [Concomitant]

REACTIONS (3)
  - ASPIRATION [None]
  - DRUG ADMINISTRATION ERROR [None]
  - X-RAY ABNORMAL [None]
